FAERS Safety Report 8494239-6 (Version None)
Quarter: 2012Q3

REPORT INFORMATION
  Report Type: 
  Country: None (occurrence: None)
  Receive Date: 20120709
  Receipt Date: 20120704
  Transmission Date: 20120928
  Serious: No
  Sender: FDA-Public Use
  Company Number: PHHY2012BR045531

PATIENT
  Age: 74 Year
  Sex: Female

DRUGS (1)
  1. AMLODOPINE BESYLATE AND VALSARTAN [Suspect]
     Indication: HYPERTENSION
     Dosage: 1 DF (320/5 MG), DAILY
     Dates: start: 20120522

REACTIONS (7)
  - RETCHING [None]
  - NAUSEA [None]
  - LIVER DISORDER [None]
  - MALAISE [None]
  - DRUG INTOLERANCE [None]
  - HEART RATE INCREASED [None]
  - FEAR [None]
